FAERS Safety Report 18712208 (Version 1)
Quarter: 2021Q1

REPORT INFORMATION
  Report Type: Spontaneous
  Country: US (occurrence: US)
  Receive Date: 20210107
  Receipt Date: 20210107
  Transmission Date: 20210419
  Serious: No
  Sender: FDA-Public Use
  Company Number: None

PATIENT
  Age: 77 Year
  Sex: Male
  Weight: 115.2 kg

DRUGS (10)
  1. ERLEADA [Suspect]
     Active Substance: APALUTAMIDE
     Indication: PROSTATE CANCER
     Route: 048
     Dates: start: 20200423
  2. TUMS 500MG [Concomitant]
  3. BACTROBAN NASAL 2% [Concomitant]
  4. PROBIOTIC 10 [Concomitant]
     Active Substance: DIETARY SUPPLEMENT\PROBIOTICS
  5. LUPRON DEPOT 45MG [Concomitant]
  6. FLOMAX 0.4MG [Concomitant]
  7. CALCIUM CARBONATE ? VITAMIN D 600?400 MG?UNIT [Concomitant]
  8. HYDROCORTISONE 2.5% [Concomitant]
     Active Substance: HYDROCORTISONE
  9. MUTIVITAMIN [Concomitant]
  10. OMEGA 3 [Concomitant]
     Active Substance: OMEGA-3 FATTY ACIDS

REACTIONS (1)
  - Fatigue [None]

NARRATIVE: CASE EVENT DATE: 20210107
